FAERS Safety Report 25664405 (Version 1)
Quarter: 2025Q3

REPORT INFORMATION
  Report Type: Spontaneous
  Country: US (occurrence: None)
  Receive Date: 20250808
  Receipt Date: 20250808
  Transmission Date: 20251020
  Serious: Yes (Disabling)
  Sender: FDA-CTU
  Company Number: None

PATIENT
  Age: 39 Year
  Sex: Female
  Weight: 59.85 kg

DRUGS (5)
  1. CLINDAMYCIN PHOSPHATE [Suspect]
     Active Substance: CLINDAMYCIN PHOSPHATE
     Indication: Bacterial vaginosis
     Dosage: 5 APPLICATOR AT BEDTIMA VAGINAL ?
     Route: 067
     Dates: start: 20240430, end: 20240506
  2. DESONIDE 0.05% OINTIMENT [Concomitant]
  3. FLUTICASONE [Concomitant]
     Active Substance: FLUTICASONE
  4. BIRTH CONTROL NORG-ETHIN ESTRA 0.25, [Concomitant]
  5. CETIRIZINE HYDROCHLORIDE [Concomitant]
     Active Substance: CETIRIZINE HYDROCHLORIDE

REACTIONS (2)
  - Vulvovaginal pain [None]
  - Muscle tightness [None]

NARRATIVE: CASE EVENT DATE: 20240503
